FAERS Safety Report 24281807 (Version 4)
Quarter: 2025Q1

REPORT INFORMATION
  Report Type: Spontaneous
  Country: US (occurrence: None)
  Receive Date: 20240904
  Receipt Date: 20250228
  Transmission Date: 20250409
  Serious: No
  Sender: INCYTE
  Company Number: US-INCYTE CORPORATION-2024IN008891

PATIENT
  Age: 68 Year

DRUGS (12)
  1. JAKAFI [Suspect]
     Active Substance: RUXOLITINIB
     Indication: Splenomegaly
     Dosage: 10 MILLIGRAM, BID (ABOUT THE SAME TIME EACH DAY, TAKE WITH OR WITHOUT FOOD)
  2. ACETAMINOPHEN [Concomitant]
     Active Substance: ACETAMINOPHEN
     Indication: Product used for unknown indication
     Route: 065
  3. ATORVASTATIN [Concomitant]
     Active Substance: ATORVASTATIN
     Indication: Product used for unknown indication
     Route: 065
  4. VITAMIN B COMPLEX [Concomitant]
     Active Substance: CYANOCOBALAMIN\DEXPANTHENOL\NIACINAMIDE\PYRIDOXINE HYDROCHLORIDE\RIBOFLAVIN 5^-PHOSPHATE SODIUM\THIA
     Indication: Product used for unknown indication
     Route: 065
  5. ELIQUIS [Concomitant]
     Active Substance: APIXABAN
     Indication: Product used for unknown indication
     Route: 065
  6. ESOMEPRAZOLE MAGNESIUM [Concomitant]
     Active Substance: ESOMEPRAZOLE MAGNESIUM
     Indication: Product used for unknown indication
     Route: 065
  7. FEXOFENADINE [Concomitant]
     Active Substance: FEXOFENADINE HYDROCHLORIDE
     Indication: Product used for unknown indication
     Route: 065
  8. LOSARTAN POTASSIUM [Concomitant]
     Active Substance: LOSARTAN POTASSIUM
     Indication: Product used for unknown indication
     Route: 065
  9. QUINAPRIL [Concomitant]
     Active Substance: QUINAPRIL
     Indication: Product used for unknown indication
     Route: 065
  10. TERBINAFINE [Concomitant]
     Active Substance: TERBINAFINE
     Indication: Product used for unknown indication
     Route: 065
  11. VITAMIN D3 [Concomitant]
     Active Substance: CHOLECALCIFEROL
     Indication: Product used for unknown indication
     Route: 065
  12. CALCIUM MAGNESIUM ZINC VITAMIN D3 [Concomitant]
     Indication: Product used for unknown indication
     Route: 065

REACTIONS (7)
  - Dizziness [Unknown]
  - Fatigue [Unknown]
  - Headache [Unknown]
  - Weight increased [Unknown]
  - Rash [Unknown]
  - Pruritus [Unknown]
  - Off label use [Unknown]
